FAERS Safety Report 12329076 (Version 3)
Quarter: 2018Q2

REPORT INFORMATION
  Report Type: Spontaneous
  Country: US (occurrence: US)
  Receive Date: 20160503
  Receipt Date: 20180626
  Transmission Date: 20180711
  Serious: Yes (Hospitalization, Other)
  Sender: FDA-Public Use
  Company Number: US-ELI_LILLY_AND_COMPANY-US201604010446

PATIENT
  Age: 54 Year
  Sex: Male
  Weight: 112 kg

DRUGS (20)
  1. VENLAFAXINE [Concomitant]
     Active Substance: VENLAFAXINE HYDROCHLORIDE
     Indication: ANXIETY
     Dosage: 75 MG, BID
     Route: 048
     Dates: start: 2006
  2. ECHINACEA                          /01323501/ [Concomitant]
     Active Substance: ECHINACEA PURPUREA
     Indication: SUPPLEMENTATION THERAPY
     Dosage: UNK UNK, UNKNOWN
     Route: 065
     Dates: start: 2005
  3. XANAX [Concomitant]
     Active Substance: ALPRAZOLAM
     Indication: ANXIETY
     Dosage: 40 MG, UNKNOWN
     Route: 048
     Dates: end: 201203
  4. ZINC SULFATE [Concomitant]
     Active Substance: ZINC SULFATE\ZINC SULFATE ANHYDROUS
     Indication: IMMUNE ENHANCEMENT THERAPY
     Dosage: 50 MG, QD
     Route: 048
     Dates: start: 2005
  5. VENLAFAXINE [Concomitant]
     Active Substance: VENLAFAXINE HYDROCHLORIDE
     Indication: DEPRESSION
  6. ATORVASTATIN [Concomitant]
     Active Substance: ATORVASTATIN
     Indication: LIPIDS
     Dosage: UNK UNK, UNKNOWN
     Route: 065
  7. OMEGA 3 FISH OIL                   /01334101/ [Concomitant]
     Active Substance: FISH OIL
     Indication: SUPPLEMENTATION THERAPY
     Dosage: 1000 MG, TID
     Route: 065
     Dates: start: 2001
  8. NITROSTAT [Concomitant]
     Active Substance: NITROGLYCERIN
     Indication: ANGINA PECTORIS
     Dosage: UNK UNK, UNKNOWN
     Route: 065
     Dates: start: 2006
  9. FENOFIBRATE. [Concomitant]
     Active Substance: FENOFIBRATE
     Indication: LIPIDS
     Dosage: UNK UNK, UNKNOWN
     Route: 048
     Dates: start: 2001
  10. AXIRON [Suspect]
     Active Substance: TESTOSTERONE
     Indication: BLOOD TESTOSTERONE DECREASED
     Dosage: UNK UNK, QD
     Route: 061
     Dates: start: 20120222, end: 20120313
  11. ASPIRIN                            /00002701/ [Concomitant]
     Active Substance: ASPIRIN
     Indication: ANGINA PECTORIS
     Dosage: 325 MG, QD
     Route: 048
     Dates: start: 2004, end: 201203
  12. CARVEDILOL. [Concomitant]
     Active Substance: CARVEDILOL
     Indication: CARDIAC DISORDER
     Dosage: 3.125 MG, BID
     Route: 048
     Dates: start: 2006
  13. GINKGO BILOBA [Concomitant]
     Active Substance: GINKGO
     Indication: MEMORY IMPAIRMENT
     Dosage: UNK UNK, UNKNOWN
     Route: 065
     Dates: start: 2006
  14. PREVACID [Concomitant]
     Active Substance: LANSOPRAZOLE
     Indication: GASTROOESOPHAGEAL REFLUX DISEASE
     Dosage: 30 MG, QD
     Route: 048
     Dates: start: 1986, end: 201203
  15. VITAMIN D3 [Concomitant]
     Active Substance: CHOLECALCIFEROL
     Indication: VITAMIN D DECREASED
     Dosage: UNK UNK, UNKNOWN
     Route: 065
     Dates: start: 2012
  16. NAPROXEN. [Concomitant]
     Active Substance: NAPROXEN
     Indication: PAIN
     Dosage: 500 MG, PRN
     Route: 048
     Dates: end: 201203
  17. LORAZEPAM. [Concomitant]
     Active Substance: LORAZEPAM
     Indication: ANXIETY
     Dosage: UNK UNK, UNKNOWN
     Route: 065
     Dates: start: 2004
  18. VITAMIN B COMPLEX [Concomitant]
     Active Substance: CYANOCOBALAMIN\DEXPANTHENOL\NIACINAMIDE\PYRIDOXINE HYDROCHLORIDE\RIBOFLAVIN 5^-PHOSPHATE SODIUM\THIAMINE HYDROCHLORIDE\VITAMIN B COMPLEX
     Indication: VITAMIN SUPPLEMENTATION
     Dosage: 1000 UG, QD
     Route: 048
     Dates: start: 2005
  19. COENZYME Q10 [Concomitant]
     Active Substance: UBIDECARENONE
     Indication: SUPPLEMENTATION THERAPY
     Dosage: 400 MG, BID
     Route: 048
     Dates: start: 2005
  20. MELATONIN [Concomitant]
     Active Substance: MELATONIN
     Indication: SLEEP DISORDER
     Dosage: UNK UNK, UNKNOWN
     Route: 065
     Dates: start: 2006

REACTIONS (3)
  - Pulmonary embolism [Not Recovered/Not Resolved]
  - Drug hypersensitivity [Not Recovered/Not Resolved]
  - Headache [Not Recovered/Not Resolved]

NARRATIVE: CASE EVENT DATE: 2012
